FAERS Safety Report 10852576 (Version 1)
Quarter: 2015Q1

REPORT INFORMATION
  Report Type: Spontaneous
  Country: US (occurrence: US)
  Receive Date: 20150222
  Receipt Date: 20150222
  Transmission Date: 20150721
  Serious: No
  Sender: FDA-Public Use
  Company Number: US-ALLERGAN-1420249US

PATIENT
  Age: 40 Year
  Sex: Female

DRUGS (1)
  1. BOTOX COSMETIC [Suspect]
     Active Substance: ONABOTULINUMTOXINA
     Indication: SKIN WRINKLING
     Dosage: 36 UNITS, SINGLE
     Route: 030
     Dates: start: 201409, end: 201409

REACTIONS (7)
  - Eyelid ptosis [Unknown]
  - Off label use [Unknown]
  - Skin wrinkling [Unknown]
  - Depressed mood [Unknown]
  - Fatigue [Unknown]
  - Skin disorder [Unknown]
  - Drug ineffective [Unknown]
